FAERS Safety Report 9207644 (Version 4)
Quarter: 2015Q1

REPORT INFORMATION
  Report Type: Report from Study
  Country: JP (occurrence: JP)
  Receive Date: 20130403
  Receipt Date: 20150309
  Transmission Date: 20150721
  Serious: Yes (Death, Hospitalization)
  Sender: FDA-Public Use
  Company Number: JP-ROCHE-1209248

PATIENT
  Age: 60 Year
  Sex: Male
  Weight: 61 kg

DRUGS (10)
  1. METHOXY POLYETHYLENE GLYCOL-EPOETIN BETA [Suspect]
     Active Substance: PEGZEREPOETIN ALFA
     Indication: NEPHROGENIC ANAEMIA
     Route: 041
     Dates: start: 20120921, end: 20121019
  2. PHOSBLOCK [Concomitant]
     Active Substance: FERRIC HYDROXIDE
     Indication: CONGENITAL CYSTIC KIDNEY DISEASE
     Route: 048
     Dates: end: 20130315
  3. BUFFERIN A (JAPAN) [Concomitant]
     Route: 048
     Dates: end: 20130315
  4. VITAMEDIN (JAPAN) [Concomitant]
     Route: 048
     Dates: end: 20130315
  5. METHOXY POLYETHYLENE GLYCOL-EPOETIN BETA [Suspect]
     Active Substance: PEGZEREPOETIN ALFA
     Indication: NEPHROGENIC ANAEMIA
     Route: 041
     Dates: start: 20121116, end: 20130208
  6. ARTIST [Concomitant]
     Active Substance: CARVEDILOL
     Route: 048
     Dates: end: 20130315
  7. PRECIPITATED CALCIUM CARBONATE [Concomitant]
     Active Substance: CALCIUM CARBONATE
     Indication: CONGENITAL CYSTIC KIDNEY DISEASE
     Route: 048
     Dates: end: 20130315
  8. METHOXY POLYETHYLENE GLYCOL-EPOETIN BETA [Suspect]
     Active Substance: PEGZEREPOETIN ALFA
     Indication: NEPHROGENIC ANAEMIA
     Route: 041
     Dates: start: 20130208, end: 20130208
  9. PROMAC (JAPAN) [Concomitant]
     Route: 048
     Dates: end: 20130315
  10. EXFORGE [Concomitant]
     Active Substance: AMLODIPINE BESYLATE\VALSARTAN
     Route: 048
     Dates: end: 20130312

REACTIONS (3)
  - Shunt blood flow excessive [Not Recovered/Not Resolved]
  - Thrombotic stroke [Fatal]
  - Shunt thrombosis [Recovered/Resolved]

NARRATIVE: CASE EVENT DATE: 20121203
